FAERS Safety Report 7626178-4 (Version None)
Quarter: 2011Q3

REPORT INFORMATION
  Report Type: 
  Country: None (occurrence: None)
  Receive Date: 20110721
  Receipt Date: 20110708
  Transmission Date: 20111222
  Serious: Yes (Other)
  Sender: FDA-Public Use
  Company Number: PHHY2011BR61367

PATIENT
  Sex: Female
  Weight: 80 kg

DRUGS (1)
  1. FORMOTEROL FUMARATE [Suspect]
     Indication: PNEUMONIA PRIMARY ATYPICAL
     Dosage: 2 CAPSULES( TREATMENT FORMOTEROL  FUMARATE AND BUBESONIDE) BID
     Dates: start: 20110101

REACTIONS (4)
  - OSTEOPENIA [None]
  - SOMNOLENCE [None]
  - COUGH [None]
  - ASTHENIA [None]
